FAERS Safety Report 9525451 (Version 1)
Quarter: 2013Q3

REPORT INFORMATION
  Report Type: Spontaneous
  Country: US (occurrence: None)
  Receive Date: 20130913
  Receipt Date: 20130913
  Transmission Date: 20140515
  Serious: Yes (Life-Threatening, Hospitalization)
  Sender: FDA-Public Use
  Company Number: None

PATIENT
  Age: 85 Year
  Sex: Female
  Weight: 55 kg

DRUGS (4)
  1. RIVASTIGMINE [Suspect]
     Indication: DEMENTIA
     Dosage: TRANSDERMAL
     Route: 062
     Dates: start: 20130327, end: 20130909
  2. LISINOPRIL [Concomitant]
  3. ASPIRIN [Concomitant]
  4. MIRTAZAPINE [Concomitant]

REACTIONS (1)
  - Atrioventricular block second degree [None]
